FAERS Safety Report 10190107 (Version 1)
Quarter: 2014Q2

REPORT INFORMATION
  Report Type: Spontaneous
  Country: US (occurrence: US)
  Receive Date: 20140522
  Receipt Date: 20140522
  Transmission Date: 20141212
  Serious: Yes (Other)
  Sender: FDA-Public Use
  Company Number: US-MYLANLABS-2014S1011197

PATIENT
  Age: 47 Year
  Sex: Female

DRUGS (3)
  1. HYDROXYZINE [Suspect]
     Indication: ANTIALLERGIC THERAPY
     Route: 048
  2. HYDROXYZINE [Suspect]
     Indication: ANTIALLERGIC THERAPY
     Dosage: STARTED WITH 2MG, THEN INCREASED AFTER 20 MIN
     Route: 048
  3. HYDROXYZINE [Suspect]
     Indication: ANTIALLERGIC THERAPY
     Dosage: 4MG
     Route: 048

REACTIONS (1)
  - Anaphylactic reaction [Recovered/Resolved]
